FAERS Safety Report 8224488-3 (Version None)
Quarter: 2012Q1

REPORT INFORMATION
  Report Type: 
  Country: None (occurrence: None)
  Receive Date: 20120321
  Receipt Date: 20120312
  Transmission Date: 20120608
  Serious: Yes (Hospitalization)
  Sender: FDA-Public Use
  Company Number: PHEH2011US05230

PATIENT
  Sex: Female

DRUGS (8)
  1. AVONEX [Concomitant]
     Dosage: 4 DOSES EVERY WEEK
  2. GILENYA [Suspect]
     Indication: MULTIPLE SCLEROSIS
     Dosage: 0.5 MG, QD
     Route: 048
     Dates: start: 20110921, end: 20110921
  3. BACLOFEN [Concomitant]
     Indication: MUSCLE SPASMS
     Dosage: UNK UKN, UNK
  4. GABAPENTIN [Concomitant]
     Indication: PAIN
     Dosage: UNK UKN, UNK
  5. PREDNISONE [Concomitant]
     Dosage: 10 MG, UNK
  6. BETASERON [Concomitant]
     Indication: RELAPSING-REMITTING MULTIPLE SCLEROSIS
  7. DESIPRAMINE HCL [Concomitant]
  8. SOLU-MEDROL [Concomitant]
     Dosage: 1 G, UNK

REACTIONS (22)
  - ELECTROCARDIOGRAM T WAVE ABNORMAL [None]
  - HYPOTENSION [None]
  - ORTHOSTATIC HYPOTENSION [None]
  - HYPERHIDROSIS [None]
  - ELECTROCARDIOGRAM ABNORMAL [None]
  - ELECTROCARDIOGRAM REPOLARISATION ABNORMALITY [None]
  - PARAESTHESIA [None]
  - ATRIOVENTRICULAR BLOCK FIRST DEGREE [None]
  - ELECTROCARDIOGRAM QT PROLONGED [None]
  - NAUSEA [None]
  - ARRHYTHMIA [None]
  - BUNDLE BRANCH BLOCK LEFT [None]
  - PRESYNCOPE [None]
  - DIZZINESS [None]
  - HEART RATE DECREASED [None]
  - ECG SIGNS OF MYOCARDIAL ISCHAEMIA [None]
  - VISION BLURRED [None]
  - CONDUCTION DISORDER [None]
  - SINUS BRADYCARDIA [None]
  - MALAISE [None]
  - RIGHT VENTRICULAR HYPERTROPHY [None]
  - ELECTROCARDIOGRAM P WAVE ABNORMAL [None]
